FAERS Safety Report 14343577 (Version 1)
Quarter: 2017Q4

REPORT INFORMATION
  Report Type: Spontaneous
  Country: US (occurrence: US)
  Receive Date: 20171229
  Receipt Date: 20171229
  Transmission Date: 20180321
  Serious: Yes (Death)
  Sender: FDA-Public Use
  Company Number: None

PATIENT
  Sex: Male

DRUGS (11)
  1. CITALOPRAM [Concomitant]
     Active Substance: CITALOPRAM HYDROBROMIDE
  2. DEXAMETHASON POW ACETATE [Concomitant]
  3. LACTULOSE. [Concomitant]
     Active Substance: LACTULOSE
  4. FENTANYL. [Concomitant]
     Active Substance: FENTANYL
  5. LONSURF [Suspect]
     Active Substance: TIPIRACIL HYDROCHLORIDE\TRIFLURIDINE
  6. LONSURF [Suspect]
     Active Substance: TIPIRACIL HYDROCHLORIDE\TRIFLURIDINE
     Indication: COLON CANCER
     Route: 048
     Dates: start: 20171102
  7. XARELTO [Concomitant]
     Active Substance: RIVAROXABAN
  8. MORPHINE [Concomitant]
     Active Substance: MORPHINE
  9. LONSURF [Suspect]
     Active Substance: TIPIRACIL HYDROCHLORIDE\TRIFLURIDINE
     Indication: METASTASES TO LYMPH NODES
     Route: 048
     Dates: start: 20171102
  10. DILAUDID [Concomitant]
     Active Substance: HYDROMORPHONE HYDROCHLORIDE
  11. MULTIVIT [Concomitant]
     Active Substance: VITAMINS

REACTIONS (1)
  - Death [None]
